FAERS Safety Report 8064161-8 (Version None)
Quarter: 2012Q1

REPORT INFORMATION
  Report Type: 
  Country: None (occurrence: None)
  Receive Date: 20120123
  Receipt Date: 20120116
  Transmission Date: 20120608
  Serious: Yes (Other)
  Sender: FDA-Public Use
  Company Number: JP-GLAXOSMITHKLINE-B0776566A

PATIENT
  Age: 53 Year
  Sex: Male

DRUGS (3)
  1. PAXIL [Suspect]
     Dosage: 20MG PER DAY
     Route: 048
  2. PAXIL [Suspect]
     Dosage: 10MG PER DAY
     Route: 048
  3. PAXIL [Suspect]
     Indication: PRODUCT USED FOR UNKNOWN INDICATION
     Dosage: 30MG PER DAY
     Route: 048

REACTIONS (13)
  - MASKED FACIES [None]
  - GAIT DISTURBANCE [None]
  - NERVOUS SYSTEM DISORDER [None]
  - ASTERIXIS [None]
  - NAUSEA [None]
  - BRADYKINESIA [None]
  - AKINESIA [None]
  - TREMOR [None]
  - MUSCLE RIGIDITY [None]
  - PARKINSONISM [None]
  - ASTHENIA [None]
  - VOMITING [None]
  - DYSSTASIA [None]
